FAERS Safety Report 9044929 (Version 5)
Quarter: 2014Q2

REPORT INFORMATION
  Report Type: Spontaneous
  Country: JP (occurrence: JP)
  Receive Date: 20130130
  Receipt Date: 20140422
  Transmission Date: 20141212
  Serious: Yes (Hospitalization)
  Sender: FDA-Public Use
  Company Number: JP-GLAXOSMITHKLINE-B0862493A

PATIENT
  Age: 17 Year
  Sex: Male

DRUGS (2)
  1. FLOLAN [Suspect]
     Indication: PULMONARY HYPERTENSION
     Dates: start: 200403
  2. UNKNOWN DRUG [Concomitant]
     Route: 048

REACTIONS (4)
  - Hyperthyroidism [Recovering/Resolving]
  - Basedow^s disease [Recovering/Resolving]
  - Pulmonary hypertension [Recovering/Resolving]
  - Malaise [Recovered/Resolved]
